FAERS Safety Report 5775414-8 (Version None)
Quarter: 2008Q2

REPORT INFORMATION
  Report Type: 
  Country: None (occurrence: None)
  Receive Date: 20080613
  Receipt Date: 20080604
  Transmission Date: 20081010
  Serious: Yes (Hospitalization, Other)
  Sender: FDA-Public Use
  Company Number: 163-21880-08060210

PATIENT
  Age: 72 Year
  Sex: Male
  Weight: 90.9 kg

DRUGS (3)
  1. REVLIMID [Suspect]
     Indication: MULTIPLE MYELOMA
     Dosage: 25 MG, QD ON DAYS 1-21, ORAL
     Route: 048
     Dates: start: 20071213, end: 20080528
  2. DEXAMETHASONE TAB [Suspect]
     Indication: MULTIPLE MYELOMA
     Dosage: 40 MG, DAYS 1, 8, 15 AND 22, ORAL
     Route: 048
     Dates: start: 20071213, end: 20080527
  3. BEVACIZUMAB (BEVACIAUMAB) [Suspect]
     Indication: MULTIPLE MYELOMA
     Dosage: 10 MG/KG, OVER 90-30 MINUTES ON DAY 1 AND 15, INTRAVENOUS
     Route: 042
     Dates: start: 20071213, end: 20080304

REACTIONS (13)
  - ABDOMINAL PAIN UPPER [None]
  - ACUTE CORONARY SYNDROME [None]
  - ACUTE MYOCARDIAL INFARCTION [None]
  - AORTIC VALVE SCLEROSIS [None]
  - BLOOD PRESSURE INCREASED [None]
  - CARDIAC DISORDER [None]
  - CARDIAC SEPTAL DEFECT [None]
  - CORONARY ARTERY STENOSIS [None]
  - DISEASE PROGRESSION [None]
  - DRUG EFFECT DECREASED [None]
  - HYPERGLYCAEMIA [None]
  - LEFT VENTRICULAR HYPERTROPHY [None]
  - TROPONIN T INCREASED [None]
